FAERS Safety Report 16234512 (Version 2)
Quarter: 2020Q1

REPORT INFORMATION
  Report Type: Spontaneous
  Country: US (occurrence: US)
  Receive Date: 20190424
  Receipt Date: 20200309
  Transmission Date: 20200409
  Serious: Yes (Hospitalization)
  Sender: FDA-Public Use
  Company Number: US-JNJFOC-20190416400

PATIENT
  Age: 50 Year
  Sex: Female

DRUGS (1)
  1. XARELTO [Suspect]
     Active Substance: RIVAROXABAN
     Indication: DEVICE RELATED THROMBOSIS
     Route: 048
     Dates: start: 20170420, end: 20170701

REACTIONS (1)
  - Anastomotic ulcer haemorrhage [Unknown]

NARRATIVE: CASE EVENT DATE: 20170701
